FAERS Safety Report 15763111 (Version 2)
Quarter: 2019Q1

REPORT INFORMATION
  Report Type: Report from Study
  Country: CN (occurrence: CN)
  Receive Date: 20181226
  Receipt Date: 20190104
  Transmission Date: 20190417
  Serious: Yes (Death)
  Sender: FDA-Public Use
  Company Number: CN-AMGEN-CHNCT2018185431

PATIENT
  Age: 61 Year
  Sex: Female

DRUGS (12)
  1. CINACALCET HCL [Suspect]
     Active Substance: CINACALCET HYDROCHLORIDE
     Dosage: 50 MG, UNK
     Route: 048
     Dates: start: 20180302, end: 20180524
  2. CALCIUM ACETATE. [Concomitant]
     Active Substance: CALCIUM ACETATE
     Indication: HYPERPHOSPHATAEMIA
     Dosage: 2000 MG, TID
     Route: 048
     Dates: start: 2014, end: 20181218
  3. ASPIRIN. [Concomitant]
     Active Substance: ASPIRIN
     Indication: RENAL HYPERTENSION
     Dosage: 100 MG, QD
     Route: 048
     Dates: start: 2004, end: 20181218
  4. INSULIN PROTAMINE ZINC [Concomitant]
     Active Substance: INSULIN NOS
     Indication: DIABETES MELLITUS
     Dosage: 300 IU, AS NECESSARY (PRN)
     Route: 058
     Dates: start: 1995, end: 20181218
  5. CINACALCET HCL [Suspect]
     Active Substance: CINACALCET HYDROCHLORIDE
     Dosage: 25 MG, QD
     Route: 048
     Dates: start: 20180525, end: 20180917
  6. BENIDIPINE [Concomitant]
     Active Substance: BENIDIPINE
     Indication: RENAL HYPERTENSION
     Dosage: 16 MG, BID
     Route: 048
     Dates: start: 2004, end: 20181218
  7. TRIMETAZIDINE HYDROCHLORIDE [Concomitant]
     Active Substance: TRIMETAZIDINE DIHYDROCHLORIDE
     Indication: RENAL HYPERTENSION
     Dosage: 20 MG, BID
     Route: 048
     Dates: start: 2004, end: 20181218
  8. CINACALCET HCL [Suspect]
     Active Substance: CINACALCET HYDROCHLORIDE
     Indication: HYPERPARATHYROIDISM SECONDARY
     Dosage: 25 MG, QD
     Route: 048
     Dates: start: 20180202, end: 20180301
  9. IRON SUCROSE [Concomitant]
     Active Substance: IRON SUCROSE
     Indication: NEPHROGENIC ANAEMIA
     Dosage: 100 MG, QWK
     Route: 042
     Dates: start: 2014, end: 20181218
  10. METOPROLOL SUCCINATE. [Concomitant]
     Active Substance: METOPROLOL SUCCINATE
     Indication: RENAL HYPERTENSION
     Dosage: 47.5 MG, QD
     Route: 048
     Dates: start: 2014, end: 20181218
  11. EPO [Concomitant]
     Active Substance: ERYTHROPOIETIN
     Indication: NEPHROGENIC ANAEMIA
     Dosage: 10000 UNIT, Q3WK
     Route: 058
     Dates: start: 2014, end: 20181218
  12. VALSARTAN. [Concomitant]
     Active Substance: VALSARTAN
     Indication: RENAL HYPERTENSION
     Dosage: 85 MG, BID
     Route: 048
     Dates: start: 2004, end: 20181218

REACTIONS (1)
  - Sepsis [Fatal]

NARRATIVE: CASE EVENT DATE: 20181218
